FAERS Safety Report 12374417 (Version 1)
Quarter: 2016Q2

REPORT INFORMATION
  Report Type: Spontaneous
  Country: US (occurrence: None)
  Receive Date: 20160516
  Receipt Date: 20160516
  Transmission Date: 20160815
  Serious: Yes (Disabling)
  Sender: FDA-Public Use
  Company Number: None

PATIENT
  Age: 62 Year
  Sex: Female
  Weight: 68.04 kg

DRUGS (11)
  1. QVAR [Concomitant]
     Active Substance: BECLOMETHASONE DIPROPIONATE
  2. BENICAR [Concomitant]
     Active Substance: OLMESARTAN MEDOXOMIL
  3. ALLOPURINOL. [Concomitant]
     Active Substance: ALLOPURINOL
  4. VITAMIN D [Concomitant]
     Active Substance: CHOLECALCIFEROL
  5. TUMS [Concomitant]
     Active Substance: CALCIUM CARBONATE
  6. LEVOTHYROXIN [Concomitant]
     Active Substance: LEVOTHYROXINE
  7. AMBIEN [Concomitant]
     Active Substance: ZOLPIDEM TARTRATE
  8. LEVOFLOXACIN. [Suspect]
     Active Substance: LEVOFLOXACIN
     Indication: SINUSITIS
     Dosage: 10 TABLETS ONCE A DAY
     Route: 048
     Dates: start: 20160425, end: 20160504
  9. XALATAN [Concomitant]
     Active Substance: LATANOPROST
  10. LEVOFLOXACIN. [Suspect]
     Active Substance: LEVOFLOXACIN
     Indication: BRONCHITIS
     Dosage: 10 TABLETS ONCE A DAY
     Route: 048
     Dates: start: 20160425, end: 20160504
  11. ACCOLATE [Concomitant]
     Active Substance: ZAFIRLUKAST

REACTIONS (3)
  - Blood pressure decreased [None]
  - Pain in extremity [None]
  - Tenderness [None]

NARRATIVE: CASE EVENT DATE: 20160504
